FAERS Safety Report 5940095-7 (Version None)
Quarter: 2008Q4

REPORT INFORMATION
  Report Type: 
  Country: None (occurrence: None)
  Receive Date: 20081104
  Receipt Date: 20081030
  Transmission Date: 20090506
  Serious: Yes (Death)
  Sender: FDA-Public Use
  Company Number: PHBS2008US06174

PATIENT
  Age: 16 Year
  Sex: Female

DRUGS (6)
  1. CYCLOSPORINE [Suspect]
     Indication: CORD BLOOD TRANSPLANT THERAPY
  2. CYCLOSPORINE [Suspect]
     Indication: PROPHYLAXIS AGAINST GRAFT VERSUS HOST DISEASE
  3. METHYLPREDNISOLONE 16MG TAB [Suspect]
     Indication: PROPHYLAXIS AGAINST GRAFT VERSUS HOST DISEASE
     Dosage: 1 MG/KG, BID
     Route: 042
  4. METHYLPREDNISOLONE 16MG TAB [Suspect]
     Dosage: SHOURT COURSE
     Route: 042
  5. CYCLOPHOSPHAMIDE [Concomitant]
     Dosage: 60 MG/KG, QD
     Route: 042
  6. ANTI-THYMOCYTE GLOBULIN NOS [Concomitant]
     Dosage: 30 MG/KG, BID
     Route: 042

REACTIONS (1)
  - CEREBRAL ASPERGILLOSIS [None]
